FAERS Safety Report 6161658-2 (Version None)
Quarter: 2009Q2

REPORT INFORMATION
  Report Type: 
  Country: None (occurrence: None)
  Receive Date: 20090421
  Receipt Date: 20090416
  Transmission Date: 20091009
  Serious: No
  Sender: FDA-Public Use
  Company Number: US-B.I. PHARMACEUTICALS,INC./RIDGEFIELD-2009-BP-04274BP

PATIENT
  Age: 58 Year
  Sex: Female

DRUGS (3)
  1. MIRAPEX [Suspect]
     Indication: PARKINSON'S DISEASE
     Dosage: 4.5MG
     Dates: start: 20070904, end: 20090401
  2. PARCOPA [Concomitant]
     Dates: start: 20080601
  3. ARICEPT [Concomitant]
     Dosage: 1MG
     Dates: start: 20070201

REACTIONS (1)
  - PATHOLOGICAL GAMBLING [None]
